FAERS Safety Report 20515475 (Version 1)
Quarter: 2022Q1

REPORT INFORMATION
  Report Type: Spontaneous
  Country: US (occurrence: US)
  Receive Date: 20220224
  Receipt Date: 20220224
  Transmission Date: 20220424
  Serious: No
  Sender: FDA-Public Use
  Company Number: US-LANTHEUS-LMI-2021-00191

PATIENT
  Age: 94 Year
  Sex: Female
  Weight: 68 kg

DRUGS (3)
  1. DEFINITY [Suspect]
     Active Substance: PERFLUTREN
     Indication: Echocardiogram
     Dosage: 2 MILLILITER (1.3 ML DEFINITY PREPARED IN 8.7 ML NS)
     Route: 042
     Dates: start: 20210326, end: 20210326
  2. ELIQUIS [Concomitant]
     Active Substance: APIXABAN
     Indication: Deep vein thrombosis
     Dosage: UNK
  3. XANAX [Concomitant]
     Active Substance: ALPRAZOLAM
     Indication: Product used for unknown indication
     Dosage: UNK

REACTIONS (4)
  - Hypotonia [Recovered/Resolved]
  - Dyspnoea [Recovered/Resolved]
  - Heart rate decreased [Recovered/Resolved]
  - Oxygen saturation decreased [Recovered/Resolved]

NARRATIVE: CASE EVENT DATE: 20210326
